FAERS Safety Report 24944283 (Version 2)
Quarter: 2025Q1

REPORT INFORMATION
  Report Type: Spontaneous
  Country: FR (occurrence: FR)
  Receive Date: 20250208
  Receipt Date: 20250222
  Transmission Date: 20250408
  Serious: Yes (Other)
  Sender: ABBVIE
  Company Number: None

PATIENT
  Age: 9 Year
  Sex: Female

DRUGS (1)
  1. ESCITALOPRAM OXALATE [Suspect]
     Active Substance: ESCITALOPRAM OXALATE
     Indication: Wrong drug
     Route: 048

REACTIONS (4)
  - Wrong product administered [Recovered/Resolved]
  - Abdominal pain [Recovered/Resolved]
  - Product administered to patient of inappropriate age [Unknown]
  - Vomiting [Recovered/Resolved]
